FAERS Safety Report 9248987 (Version 1)
Quarter: 2013Q1

REPORT INFORMATION
  Report Type: Spontaneous
  Country: US (occurrence: None)
  Receive Date: 20130305
  Receipt Date: 20130305
  Transmission Date: 20140127
  Serious: Yes (Other)
  Sender: FDA-Public Use
  Company Number: 163-21880-12053136

PATIENT
  Age: 80 Year
  Sex: Female
  Weight: 58.51 kg

DRUGS (21)
  1. REVLIMID [Suspect]
     Indication: MYELODYSPLASTIC SYNDROME
     Dosage: 10 MG, 1 IN 1 D
     Route: 048
     Dates: start: 20120507
  2. BACTRIM (BACTRIM) [Concomitant]
  3. BROAD SPECTRUM ANTIBIOTICS (BROAD SPECTRUM) [Concomitant]
  4. FLUID (BARIUM SULFATE) [Concomitant]
  5. BLOOD TRANSFUSION (BLOOD TRANSFUSION, AUXILIARY PRODUCTS) [Concomitant]
  6. ASPIRIN (ACETYLSALICYCLIC ACID) (81 MILLIGRAM, ENTERIC-COATED TABLET) [Concomitant]
  7. ADVIL (IBUPROFEN) (100 MILLIGRAM, TABLETS) [Concomitant]
  8. ALENDRONATE SODIUM (ALENDRONATE SODIUM) (70 MILLIGRAM, TABLETS) [Concomitant]
  9. ZALKA-SELTZER (ALKA-SELTZER) (TABLETS) [Concomitant]
  10. ALPRAZOLAM (ALPRAZOLAM) (0.25 MILLIGRAM, TABLETS) [Concomitant]
  11. AMLODIPINE BESYLATE (AMLODIPINE BESILATE) (5 MILLIGRAM, TABLETS) [Concomitant]
  12. GAVISCON (GAVISCON) (CHEWABLE TABLET) [Concomitant]
  13. GLIMEPIRIDE (GLIMEPIRIDE) (2 MILLIGRAM, TABLETS) [Concomitant]
  14. MAALOX (MAALOX) (CHEWABLE TABLET) [Concomitant]
  15. METFORMIN HCL (METFORMIN HYDROCHLORIDE) (1000 MILLIGRAM, TABLETS) [Concomitant]
  16. OMEPRAZOLE (OMEPRAZOLE) (20 MILLIGRAM, ENTERIC-COATED TABLET) [Concomitant]
  17. SIMVASTATIN (SIMVASTATIN) (20 MILLIGRAM, TABLETS) [Concomitant]
  18. TYLENOL (PARACETAMOL) (325 MILLIGRAM, TABLETS) [Concomitant]
  19. LAXATIVE (SENNOSIDE A+B) [Concomitant]
  20. PEPTO BISMOL (BISMUTH SUBSALICYLATE) [Concomitant]
  21. AUGMENTIN (CLAVULIN) [Concomitant]

REACTIONS (1)
  - Pancytopenia [None]
